FAERS Safety Report 13168811 (Version 2)
Quarter: 2017Q1

REPORT INFORMATION
  Report Type: Spontaneous
  Country: SE (occurrence: SE)
  Receive Date: 20170131
  Receipt Date: 20170203
  Transmission Date: 20170428
  Serious: Yes (Hospitalization)
  Sender: FDA-Public Use
  Company Number: SE-ASTRAZENECA-2017SE10264

PATIENT
  Age: 34 Year
  Sex: Female

DRUGS (4)
  1. SEROQUEL [Suspect]
     Active Substance: QUETIAPINE FUMARATE
     Route: 048
     Dates: start: 20170108, end: 20170108
  2. THERALEN [Concomitant]
     Active Substance: TRIMEPRAZINE
  3. TEGRETOL XR [Suspect]
     Active Substance: CARBAMAZEPINE
     Route: 065
     Dates: start: 20170108, end: 20170108
  4. CIPRALEX [Suspect]
     Active Substance: ESCITALOPRAM OXALATE
     Route: 065
     Dates: start: 20170108, end: 20170108

REACTIONS (5)
  - Tachycardia [Unknown]
  - Accidental poisoning [Unknown]
  - Gastrointestinal motility disorder [Unknown]
  - Anxiety [Unknown]
  - Toxicity to various agents [Unknown]

NARRATIVE: CASE EVENT DATE: 20170108
